FAERS Safety Report 23545689 (Version 1)
Quarter: 2024Q1

REPORT INFORMATION
  Report Type: Spontaneous
  Country: US (occurrence: None)
  Receive Date: 20240218
  Receipt Date: 20240218
  Transmission Date: 20240409
  Serious: Yes (Life-Threatening, Hospitalization, Other)
  Sender: FDA-Public Use
  Company Number: None

PATIENT
  Age: 21 Year
  Sex: Male
  Weight: 90.7 kg

DRUGS (3)
  1. BUPROPION [Suspect]
     Active Substance: BUPROPION
     Indication: Major depression
     Dosage: FREQUENCY : DAILY;?
     Route: 048
  2. dextroamphetamine-amphetamine ER [Concomitant]
  3. ESZOPICLONE [Concomitant]

REACTIONS (5)
  - Angioedema [None]
  - Type IV hypersensitivity reaction [None]
  - Erythema [None]
  - Urticaria [None]
  - Urticaria [None]

NARRATIVE: CASE EVENT DATE: 20231108
